FAERS Safety Report 9191759 (Version 2)
Quarter: 2013Q2

REPORT INFORMATION
  Report Type: Spontaneous
  Country: US (occurrence: US)
  Receive Date: 20130327
  Receipt Date: 20130425
  Transmission Date: 20140414
  Serious: Yes (Other)
  Sender: FDA-Public Use
  Company Number: US-MERCK-1303USA012510

PATIENT
  Age: 44 Year
  Sex: Male

DRUGS (3)
  1. REBETOL [Suspect]
     Indication: HEPATITIS C
  2. PEG-INTRON [Suspect]
     Indication: HEPATITIS C
     Dosage: UNK
  3. TELAPREVIR [Suspect]
     Indication: HEPATITIS C

REACTIONS (2)
  - Anaemia [Unknown]
  - Off label use [Unknown]
